FAERS Safety Report 17034789 (Version 1)
Quarter: 2019Q4

REPORT INFORMATION
  Report Type: Spontaneous
  Country: US (occurrence: US)
  Receive Date: 20191115
  Receipt Date: 20191115
  Transmission Date: 20200122
  Serious: No
  Sender: FDA-Public Use
  Company Number: US-SHIRE-US201932651

PATIENT
  Sex: Male
  Weight: 69.84 kg

DRUGS (1)
  1. GATTEX [Suspect]
     Active Substance: TEDUGLUTIDE\WATER
     Indication: SHORT-BOWEL SYNDROME
     Dosage: 1.79 MILLIGRAM, 1X/DAY:QD
     Route: 058
     Dates: start: 20190416, end: 20190911

REACTIONS (1)
  - Diarrhoea [Unknown]
